FAERS Safety Report 9828267 (Version 1)
Quarter: 2014Q1

REPORT INFORMATION
  Report Type: Report from Study
  Country: US (occurrence: US)
  Receive Date: 20140117
  Receipt Date: 20140117
  Transmission Date: 20141002
  Serious: Yes (Death, Hospitalization)
  Sender: FDA-Public Use
  Company Number: US-TEVA-425299USA

PATIENT
  Age: 70 Year
  Sex: Male
  Weight: 89.9 kg

DRUGS (4)
  1. DAUNORUBICIN [Suspect]
     Dosage: 60 MG/M2/DAY IV DAYS 1-3
     Route: 042
     Dates: start: 20130418
  2. DAUNORUBICIN [Suspect]
     Dosage: 60 MG/M2/DAY IV DAYS 1-3
     Route: 042
     Dates: start: 20130510, end: 20130512
  3. CYTARABINE [Suspect]
     Dosage: 100 MG/M2/DAY IV DAYS 1-7
     Route: 042
     Dates: start: 20130418
  4. CYTARABINE [Suspect]
     Dosage: 100 MG/M2/DAY IV DAYS 1-7
     Route: 042
     Dates: start: 20130510, end: 20130517

REACTIONS (1)
  - Lung infection [Fatal]
